FAERS Safety Report 5051981-7 (Version None)
Quarter: 2006Q3

REPORT INFORMATION
  Report Type: 
  Country: None (occurrence: None)
  Receive Date: 20060711
  Receipt Date: 20060623
  Transmission Date: 20061208
  Serious: Yes (Death)
  Sender: FDA-Public Use
  Company Number: US200606002355

PATIENT
  Age: 77 Year
  Sex: Male
  Weight: 88 kg

DRUGS (4)
  1. GEMZAR [Suspect]
     Indication: BLADDER CANCER
     Dosage: 750 MG/M2
     Dates: start: 20060116, end: 20060403
  2. LASIX (FUROSEMIDE, FUROSEMIDE SODIUM) [Concomitant]
  3. LOPRESSOR [Concomitant]
  4. NEXIUM [Concomitant]

REACTIONS (6)
  - ASTHENIA [None]
  - BLOOD CREATININE INCREASED [None]
  - FAILURE TO THRIVE [None]
  - FATIGUE [None]
  - HEPATIC FAILURE [None]
  - LETHARGY [None]
